FAERS Safety Report 9978626 (Version 1)
Quarter: 2014Q1

REPORT INFORMATION
  Report Type: Spontaneous
  Country: US (occurrence: US)
  Receive Date: 20140306
  Receipt Date: 20140306
  Transmission Date: 20141002
  Serious: No
  Sender: FDA-Public Use
  Company Number: US-ABBVIE-13P-163-1170077-00

PATIENT
  Age: 70 Year
  Sex: Female
  Weight: 59.47 kg

DRUGS (3)
  1. HUMIRA [Suspect]
     Indication: COLITIS ULCERATIVE
     Dates: start: 201306
  2. DELZICOL [Concomitant]
     Indication: COLITIS ULCERATIVE
  3. EYE DROPS [Concomitant]
     Indication: GLAUCOMA

REACTIONS (1)
  - Vulvovaginal mycotic infection [Recovered/Resolved]
